FAERS Safety Report 22766238 (Version 4)
Quarter: 2024Q4

REPORT INFORMATION
  Report Type: Spontaneous
  Country: CA (occurrence: CA)
  Receive Date: 20230731
  Receipt Date: 20241120
  Transmission Date: 20250115
  Serious: Yes (Other)
  Sender: PFIZER
  Company Number: CA-PFIZER INC-202300259089

PATIENT
  Age: 9 Month
  Sex: Male

DRUGS (7)
  1. SOMATROPIN [Suspect]
     Active Substance: SOMATROPIN
     Indication: Prader-Willi syndrome
     Dosage: 200 UG, 7 TIMES IN A WEEK
     Route: 058
     Dates: start: 20230604, end: 2024
  2. SOMATROPIN [Suspect]
     Active Substance: SOMATROPIN
     Dosage: 250 UG, EVERY 7 WEEKS
     Route: 058
     Dates: start: 2024, end: 2024
  3. SOMATROPIN [Suspect]
     Active Substance: SOMATROPIN
     Dosage: 350 UG, EVERY 7 WEEKS
     Route: 058
     Dates: start: 2024, end: 2024
  4. SOMATROPIN [Suspect]
     Active Substance: SOMATROPIN
     Dosage: 400 UG, EVERY 7 WEEKS
     Route: 058
     Dates: start: 2024
  5. IRON [Concomitant]
     Active Substance: IRON
     Dosage: UNK
  6. OXYGEN [Concomitant]
     Active Substance: OXYGEN
     Dosage: UNK (AT NIGHT)
  7. SYNTHROID [Concomitant]
     Active Substance: LEVOTHYROXINE SODIUM
     Indication: Central hypothyroidism
     Dosage: 25 UG, DAILY (2.5 MCG/KG/DAY)
     Dates: start: 202303

REACTIONS (5)
  - Feeding disorder [Not Recovered/Not Resolved]
  - Scoliosis [Unknown]
  - Disease progression [Unknown]
  - Bruxism [Unknown]
  - Headache [Unknown]

NARRATIVE: CASE EVENT DATE: 20230101
